FAERS Safety Report 6300747-6 (Version None)
Quarter: 2009Q3

REPORT INFORMATION
  Report Type: 
  Country: None (occurrence: None)
  Receive Date: 20090807
  Receipt Date: 20090731
  Transmission Date: 20100115
  Serious: Yes (Hospitalization)
  Sender: FDA-Public Use
  Company Number: US-BIOGENIDEC-2009BI018521

PATIENT
  Age: 60 Year
  Sex: Female

DRUGS (2)
  1. AVONEX [Suspect]
     Indication: MULTIPLE SCLEROSIS
     Route: 030
     Dates: start: 20040801
  2. AVONEX [Suspect]
     Route: 030
     Dates: start: 20031129

REACTIONS (4)
  - BACK PAIN [None]
  - DISSOCIATION [None]
  - INTERVERTEBRAL DISC DEGENERATION [None]
  - SPINAL FRACTURE [None]
